FAERS Safety Report 8042938-2 (Version None)
Quarter: 2012Q1

REPORT INFORMATION
  Report Type: 
  Country: None (occurrence: None)
  Receive Date: 20120112
  Receipt Date: 20120105
  Transmission Date: 20120608
  Serious: Yes (Hospitalization)
  Sender: FDA-Public Use
  Company Number: FR-PFIZER INC-2012002905

PATIENT
  Age: 52 Year
  Sex: Male

DRUGS (2)
  1. METHOTREXATE [Suspect]
     Dosage: UNK
     Dates: start: 20110705
  2. CYTARABINE [Suspect]
     Dosage: UNK
     Dates: start: 20110706

REACTIONS (4)
  - HYPERTHERMIA [None]
  - CARDIOVASCULAR INSUFFICIENCY [None]
  - SEPTIC SHOCK [None]
  - OLIGURIA [None]
